FAERS Safety Report 21572660 (Version 1)
Quarter: 2022Q4

REPORT INFORMATION
  Report Type: Spontaneous
  Country: US (occurrence: None)
  Receive Date: 20221108
  Receipt Date: 20221108
  Transmission Date: 20230113
  Serious: Yes (Other)
  Sender: FDA-Public Use
  Company Number: None

PATIENT
  Age: 60 Year
  Sex: Female
  Weight: 93 kg

DRUGS (1)
  1. TEPEZZA [Suspect]
     Active Substance: TEPROTUMUMAB-TRBW
     Indication: Hyperthyroidism
     Dosage: 1860 MG EVERY 3 WEEKS INTRAVWENOUS DRIP?
     Route: 041

REACTIONS (2)
  - Muscle spasms [None]
  - Tinnitus [None]

NARRATIVE: CASE EVENT DATE: 20221014
